FAERS Safety Report 7932859-5 (Version None)
Quarter: 2011Q4

REPORT INFORMATION
  Report Type: 
  Country: None (occurrence: None)
  Receive Date: 20111122
  Receipt Date: 20111114
  Transmission Date: 20120403
  Serious: Yes (Hospitalization)
  Sender: FDA-Public Use
  Company Number: US-UCBSA-045698

PATIENT
  Age: 37 Year
  Sex: Male
  Weight: 132 kg

DRUGS (3)
  1. VIMPAT [Concomitant]
     Indication: CONVULSION
     Dosage: DAILY DOSE:600 MG
     Route: 048
     Dates: start: 20110702
  2. KEPPRA [Suspect]
     Indication: CONVULSION
     Dosage: DAILY DOSE:3000 MG
     Route: 048
     Dates: start: 20080606
  3. CITALOPRAM HYDROBROMIDE [Concomitant]
     Indication: MAJOR DEPRESSION
     Dosage: DAILY DOSE:20 MG
     Route: 048
     Dates: start: 20110910

REACTIONS (1)
  - GRAND MAL CONVULSION [None]
